FAERS Safety Report 7919039 (Version 5)
Quarter: 2015Q4

REPORT INFORMATION
  Report Type: Spontaneous
  Country: US (occurrence: US)
  Receive Date: 20110428
  Receipt Date: 20151124
  Transmission Date: 20160305
  Serious: Yes (Hospitalization)
  Sender: FDA-Public Use
  Company Number: US-BAYER-2010-002180

PATIENT
  Age: 33 Year
  Sex: Female
  Weight: 58.05 kg

DRUGS (7)
  1. CALNATE [Concomitant]
  2. YASMIN [Suspect]
     Active Substance: DROSPIRENONE\ETHINYL ESTRADIOL
     Indication: CONTRACEPTION
     Dosage: UNK
     Dates: start: 2004, end: 200505
  3. MTV [Concomitant]
  4. TOPAMAX [Concomitant]
     Active Substance: TOPIRAMATE
     Dosage: 25MG IN AM AND 50MG IN PM
  5. LIPITOR [Concomitant]
     Active Substance: ATORVASTATIN CALCIUM
     Indication: BLOOD CHOLESTEROL INCREASED
     Dosage: 80 MG,HS
  6. PREDNISONE. [Concomitant]
     Active Substance: PREDNISONE
     Indication: EAR DISCOMFORT
  7. PREDNISONE. [Concomitant]
     Active Substance: PREDNISONE
     Indication: EAR DISCOMFORT
     Dosage: UNK
     Dates: start: 20050506

REACTIONS (2)
  - Cerebrovascular accident [None]
  - Thrombosis [None]

NARRATIVE: CASE EVENT DATE: 200505
